FAERS Safety Report 8510377-3 (Version None)
Quarter: 2012Q3

REPORT INFORMATION
  Report Type: 
  Country: None (occurrence: None)
  Receive Date: 20120713
  Receipt Date: 20120710
  Transmission Date: 20120928
  Serious: Yes (Other)
  Sender: FDA-Public Use
  Company Number: US-GILEAD-2012-0057790

PATIENT
  Age: 39 Year
  Sex: Female

DRUGS (4)
  1. EMTRICITABINE/TENOFOVIR DISOPROXIL FUMARATE [Suspect]
     Dosage: 300 UNK, UNK
     Route: 048
     Dates: start: 20120316
  2. EMTRICITABINE/TENOFOVIR DISOPROXIL FUMARATE [Suspect]
     Indication: HIV INFECTION
     Dosage: 300 MG, QD
     Route: 048
     Dates: end: 20120113
  3. VIRAMUNE [Concomitant]
     Indication: HIV INFECTION
     Dosage: 400 UNK, UNK
     Route: 048
  4. COMBIVIR [Concomitant]
     Indication: HIV INFECTION
     Dosage: UNK
     Dates: start: 20120113, end: 20120316

REACTIONS (2)
  - POLYHYDRAMNIOS [None]
  - PREGNANCY [None]
